FAERS Safety Report 4617806-6 (Version None)
Quarter: 2005Q1

REPORT INFORMATION
  Report Type: 
  Country: None (occurrence: None)
  Receive Date: 20050322
  Receipt Date: 20050309
  Transmission Date: 20050727
  Serious: Yes (Hospitalization)
  Sender: FDA-Public Use
  Company Number: 2005041914

PATIENT
  Age: 71 Year
  Sex: Female

DRUGS (5)
  1. ALPRAZOLAM [Suspect]
     Indication: DEPRESSION
     Dosage: 2 MG (2 MG), ORAL
     Route: 048
     Dates: end: 20040524
  2. LEVOMEPROMAZINE (LEVOMEPROMAZINE) [Suspect]
     Indication: DEPRESSION
     Dosage: 25 MG (25 MG), ORAL
     Route: 048
     Dates: end: 20040524
  3. LOSARTAN (LOSARTAN) [Concomitant]
  4. METFORMIN HCL [Concomitant]
  5. GLYBURIDE [Concomitant]

REACTIONS (2)
  - EXTRAPYRAMIDAL DISORDER [None]
  - SOMNOLENCE [None]
